FAERS Safety Report 4406245-9 (Version None)
Quarter: 2004Q3

REPORT INFORMATION
  Report Type: 
  Country: None (occurrence: None)
  Receive Date: 20040723
  Receipt Date: 20030123
  Transmission Date: 20050211
  Serious: No
  Sender: FDA-Public Use
  Company Number: US-GLAXOSMITHKLINE-A0393765A

PATIENT
  Age: 51 Year
  Sex: Male

DRUGS (6)
  1. AVANDIA [Suspect]
     Dosage: 4MG PER DAY
     Route: 048
     Dates: start: 20020101, end: 20020101
  2. INSULIN [Concomitant]
  3. PROZAC [Concomitant]
  4. RISPERDAL [Concomitant]
  5. DIOVAN [Concomitant]
  6. MAXZIDE [Concomitant]

REACTIONS (2)
  - JOINT RANGE OF MOTION DECREASED [None]
  - JOINT SWELLING [None]
